FAERS Safety Report 9252093 (Version 1)
Quarter: 2013Q1

REPORT INFORMATION
  Report Type: Spontaneous
  Country: US (occurrence: None)
  Receive Date: 20130305
  Receipt Date: 20130305
  Transmission Date: 20140127
  Serious: Yes (Other)
  Sender: FDA-Public Use
  Company Number: 163-21880-12091029

PATIENT
  Age: 75 Year
  Sex: Male
  Weight: 79.38 kg

DRUGS (6)
  1. REVLIMID [Suspect]
     Indication: PLASMA CELL MYELOMA
     Dosage: 7.5 MG, 21 IN 28 D, PO
     Route: 048
     Dates: start: 20101012
  2. ASPIRIN (ACETYLSALICYLIC ACID) [Concomitant]
  3. NEXIUM [Concomitant]
  4. SPIRONOLACTONE (SPIRONOLACTONE) [Concomitant]
  5. STOOL SOFTENER (DOCUSATE SODIUM) [Concomitant]
  6. TRICOR (FENOFIBRATE) [Concomitant]

REACTIONS (1)
  - Rhinorrhoea [None]
